FAERS Safety Report 11988067 (Version 1)
Quarter: 2016Q1

REPORT INFORMATION
  Report Type: Spontaneous
  Country: PL (occurrence: PL)
  Receive Date: 20160202
  Receipt Date: 20160202
  Transmission Date: 20160526
  Serious: Yes (Other)
  Sender: FDA-Public Use
  Company Number: PL-ACTAVIS-2016-01169

PATIENT
  Age: 48 Year
  Sex: Female

DRUGS (3)
  1. LEVOSERT [Suspect]
     Active Substance: LEVONORGESTREL
     Indication: OFF LABEL USE
  2. LEVOSERT [Suspect]
     Active Substance: LEVONORGESTREL
     Indication: UTERINE LEIOMYOMA
  3. LEVOSERT [Suspect]
     Active Substance: LEVONORGESTREL
     Indication: MENORRHAGIA
     Dosage: 20 MCG, DAILY
     Route: 015
     Dates: start: 201512, end: 201601

REACTIONS (3)
  - Product use issue [Unknown]
  - Menorrhagia [Unknown]
  - Device expulsion [Unknown]

NARRATIVE: CASE EVENT DATE: 201512
